FAERS Safety Report 16017232 (Version 1)
Quarter: 2019Q1

REPORT INFORMATION
  Report Type: Other
  Country: IT (occurrence: IT)
  Receive Date: 20190228
  Receipt Date: 20190228
  Transmission Date: 20190418
  Serious: Yes (Hospitalization)
  Sender: FDA-Public Use
  Company Number: IT-APOTEX-2019AP008479

PATIENT
  Age: 32 Year
  Sex: Male

DRUGS (3)
  1. OLANZAPINE. [Suspect]
     Active Substance: OLANZAPINE
     Indication: ACUTE PSYCHOSIS
     Dosage: 10 MG, QD
     Route: 048
     Dates: start: 20170101, end: 20171229
  2. DELORAZEPAM [Concomitant]
     Active Substance: DELORAZEPAM
     Indication: PRODUCT USED FOR UNKNOWN INDICATION
     Dosage: UNK
     Route: 065
  3. DEPAKIN [Suspect]
     Active Substance: VALPROATE SODIUM
     Indication: ACUTE PSYCHOSIS
     Dosage: UNK
     Route: 048
     Dates: start: 20170101, end: 20171229

REACTIONS (3)
  - Delusion [Unknown]
  - Sedation [Unknown]
  - Psychomotor hyperactivity [Unknown]

NARRATIVE: CASE EVENT DATE: 20171229
